FAERS Safety Report 23505576 (Version 1)
Quarter: 2024Q1

REPORT INFORMATION
  Report Type: Spontaneous
  Country: US (occurrence: US)
  Receive Date: 20240209
  Receipt Date: 20240209
  Transmission Date: 20240410
  Serious: No
  Sender: FDA-Public Use
  Company Number: US-EYEPOINT PHARMACEUTICALS, INC.-US-EYP-22-00258

PATIENT
  Age: 69 Year
  Sex: Female

DRUGS (2)
  1. YUTIQ [Suspect]
     Active Substance: FLUOCINOLONE ACETONIDE
     Indication: Noninfective chorioretinitis
     Dosage: RIGHT EYE/OD
     Route: 031
     Dates: start: 20220923
  2. OZURDEX [Concomitant]
     Active Substance: DEXAMETHASONE
     Indication: Macular degeneration
     Dosage: BOTH EYES/OU
     Dates: start: 20210721

REACTIONS (4)
  - Drug delivery system malfunction [Unknown]
  - Off label use [Unknown]
  - Product dose omission issue [Unknown]
  - No adverse event [Unknown]

NARRATIVE: CASE EVENT DATE: 20220923
